FAERS Safety Report 7858368-X (Version None)
Quarter: 2011Q4

REPORT INFORMATION
  Report Type: 
  Country: None (occurrence: None)
  Receive Date: 20111027
  Receipt Date: 20110414
  Transmission Date: 20120403
  Serious: Yes (Death, Hospitalization, Other)
  Sender: FDA-Public Use
  Company Number: JP-BAYER-2011-026716

PATIENT
  Age: 55 Year
  Sex: Male
  Weight: 61 kg

DRUGS (10)
  1. NEXAVAR [Suspect]
     Indication: HEPATIC NEOPLASM MALIGNANT
     Dosage: DAILY DOSE 800 MG
     Route: 048
     Dates: start: 20100624, end: 20100101
  2. AMLODIPINE [Concomitant]
     Dosage: DAILY DOSE 5 MG
     Route: 048
     Dates: start: 20090801
  3. AMINOLEBAN EN [Concomitant]
     Dosage: DAILY DOSE 100 G
     Route: 048
     Dates: start: 20091001
  4. NEXAVAR [Suspect]
     Dosage: 400 MG, QD
     Route: 048
     Dates: start: 20100708, end: 20110329
  5. URSAMIC [Concomitant]
     Dosage: DAILY DOSE 600 MG
     Route: 048
     Dates: start: 20090901
  6. GASMOTIN [Concomitant]
     Dosage: DAILY DOSE 15 MG
     Route: 048
     Dates: start: 20091001
  7. LIVACT [Concomitant]
     Dosage: DAILY DOSE 8.3 G
     Route: 048
     Dates: start: 20091001
  8. MENTAX [Concomitant]
     Dosage: UNK
     Route: 061
     Dates: start: 20100806
  9. OMEPRAZOLE [Concomitant]
     Dosage: DAILY DOSE 20 MG
     Route: 048
     Dates: start: 20090801
  10. PETROLATUM SALICYLICUM [Concomitant]
     Dosage: UNK
     Route: 061
     Dates: start: 20101202

REACTIONS (9)
  - ASCITES [None]
  - DIARRHOEA [None]
  - PALMAR-PLANTAR ERYTHRODYSAESTHESIA SYNDROME [None]
  - ALOPECIA [None]
  - PAIN OF SKIN [None]
  - BLOOD BILIRUBIN INCREASED [None]
  - GENERAL PHYSICAL HEALTH DETERIORATION [None]
  - ABDOMINAL PAIN UPPER [None]
  - BLOOD PRESSURE INCREASED [None]
